FAERS Safety Report 9671165 (Version 1)
Quarter: 2013Q4

REPORT INFORMATION
  Report Type: Spontaneous
  Country: US (occurrence: US)
  Receive Date: 20131106
  Receipt Date: 20131106
  Transmission Date: 20140711
  Serious: Yes (Hospitalization, Other)
  Sender: FDA-Public Use
  Company Number: US-BAXTER-2013BAX043079

PATIENT
  Sex: Male

DRUGS (7)
  1. DIANEAL LOW CALCIUM [Suspect]
     Indication: PERITONEAL DIALYSIS
     Route: 033
     Dates: end: 20130205
  2. DIANEAL LOW CALCIUM [Suspect]
     Route: 033
     Dates: start: 201310
  3. DIANEAL LOW CALCIUM (ULTRABAG) [Suspect]
     Indication: PERITONEAL DIALYSIS
     Route: 033
     Dates: end: 20130205
  4. DIANEAL LOW CALCIUM (ULTRABAG) [Suspect]
     Route: 033
     Dates: start: 201310
  5. EXTRANEAL [Suspect]
     Indication: PERITONEAL DIALYSIS
     Route: 033
     Dates: end: 201209
  6. EXTRANEAL [Suspect]
     Route: 033
     Dates: end: 201210
  7. EXTRANEAL [Suspect]
     Route: 033
     Dates: start: 201310

REACTIONS (6)
  - Myocardial infarction [Recovered/Resolved]
  - Cerebrovascular accident [Recovered/Resolved]
  - Coma [Recovered/Resolved]
  - Post procedural complication [Unknown]
  - Disease complication [Unknown]
  - Decubitus ulcer [Recovered/Resolved]
